FAERS Safety Report 17450983 (Version 1)
Quarter: 2020Q1

REPORT INFORMATION
  Report Type: Spontaneous
  Country: US (occurrence: US)
  Receive Date: 20200210
  Receipt Date: 20200210
  Transmission Date: 20200409
  Serious: No
  Sender: FDA-Public Use
  Company Number: None

PATIENT
  Age: 74 Year
  Sex: Female

DRUGS (1)
  1. BOTOX [Suspect]
     Active Substance: ONABOTULINUMTOXINA
     Indication: MUSCLE SPASMS
     Dosage: ?          OTHER FREQUENCY:OTHER;OTHER ROUTE:OTHER?

REACTIONS (2)
  - Adverse drug reaction [None]
  - Early onset familial Alzheimer^s disease [None]

NARRATIVE: CASE EVENT DATE: 20200210
